FAERS Safety Report 9204655 (Version 1)
Quarter: 2013Q2

REPORT INFORMATION
  Report Type: Spontaneous
  Country: US (occurrence: None)
  Receive Date: 20130401
  Receipt Date: 20130401
  Transmission Date: 20140414
  Serious: Yes (Other)
  Sender: FDA-Public Use
  Company Number: None

PATIENT
  Age: 71 Year
  Sex: Male
  Weight: 102.51 kg

DRUGS (1)
  1. AMBIEN [Suspect]
     Indication: INSOMNIA

REACTIONS (2)
  - Abdominal discomfort [None]
  - Abdominal pain [None]
